FAERS Safety Report 6932035-9 (Version None)
Quarter: 2010Q3

REPORT INFORMATION
  Report Type: 
  Country: None (occurrence: None)
  Receive Date: 20100819
  Receipt Date: 20100811
  Transmission Date: 20110219
  Serious: Yes (Hospitalization, Other)
  Sender: FDA-Public Use
  Company Number: JP-MPIJNJ-2010-04237

PATIENT

DRUGS (3)
  1. VELCADE [Suspect]
     Indication: MULTIPLE MYELOMA
     Dosage: 1 MG/M2, UNK
     Route: 042
     Dates: start: 20100611, end: 20100621
  2. VELCADE [Suspect]
     Dosage: 0.7 MG/M2, UNK
     Route: 042
     Dates: start: 20100702, end: 20100712
  3. DECADRON [Suspect]
     Indication: MULTIPLE MYELOMA

REACTIONS (2)
  - HEPATIC FUNCTION ABNORMAL [None]
  - UVEITIS [None]
